FAERS Safety Report 8378624-9 (Version None)
Quarter: 2012Q2

REPORT INFORMATION
  Report Type: 
  Country: None (occurrence: None)
  Receive Date: 20120522
  Receipt Date: 20111116
  Transmission Date: 20120825
  Serious: No
  Sender: FDA-Public Use
  Company Number: US-ASTRAZENECA-2010SE40901

PATIENT
  Age: 788 Month
  Sex: Male

DRUGS (9)
  1. PRILOSEC [Suspect]
     Route: 048
  2. PLAVIX [Concomitant]
  3. ZETIA [Concomitant]
  4. PROTONIX [Concomitant]
  5. CRESTOR [Suspect]
     Indication: POST PROCEDURAL COMPLICATION
     Route: 048
     Dates: start: 20050101
  6. LISINOPRIL [Concomitant]
     Route: 048
  7. METOPROLOL [Concomitant]
     Route: 048
  8. ALPRAZOLAM [Concomitant]
  9. MULTI-VITAMIN [Concomitant]

REACTIONS (4)
  - AORTIC DILATATION [None]
  - DRUG HYPERSENSITIVITY [None]
  - NAUSEA [None]
  - HEART VALVE INCOMPETENCE [None]
